FAERS Safety Report 8507760-9 (Version None)
Quarter: 2012Q3

REPORT INFORMATION
  Report Type: 
  Country: None (occurrence: None)
  Receive Date: 20120709
  Receipt Date: 20120709
  Transmission Date: 20120928
  Serious: No
  Sender: FDA-Public Use
  Company Number: None

PATIENT
  Age: 50 Year
  Sex: Male

DRUGS (1)
  1. EGRIFTA [Suspect]
     Dosage: 2MD QD SQ
     Route: 058
     Dates: start: 20110922

REACTIONS (2)
  - DEPRESSION [None]
  - CRYING [None]
